FAERS Safety Report 12607671 (Version 1)
Quarter: 2016Q3

REPORT INFORMATION
  Report Type: Report from Study
  Country: US (occurrence: US)
  Receive Date: 20160729
  Receipt Date: 20160729
  Transmission Date: 20161109
  Serious: Yes (Other)
  Sender: FDA-Public Use
  Company Number: US-AMGEN-USASL2016096098

PATIENT
  Age: 48 Year
  Sex: Female

DRUGS (1)
  1. ENBREL [Suspect]
     Active Substance: ETANERCEPT
     Indication: RHEUMATOID ARTHRITIS
     Dosage: 50 MG, QWK
     Route: 065
     Dates: start: 20151105, end: 2016

REACTIONS (4)
  - Suture insertion [Recovering/Resolving]
  - Walking disability [Unknown]
  - Drug effect incomplete [Unknown]
  - Foot operation [Unknown]

NARRATIVE: CASE EVENT DATE: 20160707
